FAERS Safety Report 11690132 (Version 1)
Quarter: 2015Q4

REPORT INFORMATION
  Report Type: Spontaneous
  Country: US (occurrence: None)
  Receive Date: 20151030
  Receipt Date: 20151030
  Transmission Date: 20160304
  Serious: Yes (Other)
  Sender: FDA-Public Use
  Company Number: None

PATIENT
  Age: 9 Year
  Sex: Male
  Weight: 31.53 kg

DRUGS (4)
  1. DAYTRANA [Suspect]
     Active Substance: METHYLPHENIDATE
     Indication: ATTENTION DEFICIT/HYPERACTIVITY DISORDER
     Dosage: 1 PATCH FOR 9 HRS  ONCE DAILY  APPLIED AS MEDICATED PATCH TO SKIN
     Dates: start: 20130524, end: 20151028
  2. GUMMY OMEGA3 [Concomitant]
  3. GUMMY CALCIUM SUPPLEMENTS [Concomitant]
  4. GUMMY MULTIVITAMINS [Concomitant]

REACTIONS (3)
  - Skin discomfort [None]
  - Grief reaction [None]
  - Self esteem decreased [None]

NARRATIVE: CASE EVENT DATE: 20151028
